FAERS Safety Report 5066153-X (Version None)
Quarter: 2006Q3

REPORT INFORMATION
  Report Type: 
  Country: None (occurrence: None)
  Receive Date: 20060725
  Receipt Date: 20060706
  Transmission Date: 20061208
  Serious: Yes (Hospitalization, Other)
  Sender: FDA-Public Use
  Company Number: FR200606001302

PATIENT
  Age: 76 Year
  Sex: Female

DRUGS (2)
  1. FORTEO [Suspect]
     Indication: OSTEOPOROSIS
     Dosage: 20 UG DAILY (1/D), SUBCUTANEOUS
     Route: 058
     Dates: start: 20060317, end: 20060612
  2. FORTEO [Concomitant]

REACTIONS (8)
  - CHEST PAIN [None]
  - DYSPNOEA [None]
  - MULTIPLE MYELOMA [None]
  - NAUSEA [None]
  - RED BLOOD CELL SEDIMENTATION RATE INCREASED [None]
  - VOMITING [None]
  - WEIGHT DECREASED [None]
  - X-RAY ABNORMAL [None]
